FAERS Safety Report 6591539-1 (Version None)
Quarter: 2010Q1

REPORT INFORMATION
  Report Type: 
  Country: None (occurrence: None)
  Receive Date: 20100220
  Receipt Date: 20100212
  Transmission Date: 20100710
  Serious: Yes (Other)
  Sender: FDA-Public Use
  Company Number: DE-JNJFOC-20100103647

PATIENT
  Sex: Male
  Weight: 90 kg

DRUGS (1)
  1. DURAGESIC-100 [Suspect]
     Indication: TUMOUR PAIN
     Route: 062
     Dates: start: 20091222

REACTIONS (3)
  - DIPLOPIA [None]
  - NEOPLASM PROGRESSION [None]
  - VISION BLURRED [None]
